FAERS Safety Report 8167237-X (Version None)
Quarter: 2012Q1

REPORT INFORMATION
  Report Type: 
  Country: None (occurrence: None)
  Receive Date: 20120227
  Receipt Date: 20120213
  Transmission Date: 20120608
  Serious: Yes (Life-Threatening)
  Sender: FDA-Public Use
  Company Number: JP-AMGEN-JPNSP2012009202

PATIENT
  Age: 48 Year
  Sex: Male
  Weight: 59 kg

DRUGS (12)
  1. CINACALCET HYDROCHLORIDE [Suspect]
  2. OMEPRAZOLE [Concomitant]
     Indication: GASTROOESOPHAGEAL REFLUX DISEASE
     Dosage: 20 MG, QD
     Route: 048
     Dates: start: 20110107
  3. CINACALCET HYDROCHLORIDE [Suspect]
     Dosage: 25 MG, 2 TIMES/WK
     Route: 048
     Dates: start: 20111024
  4. CINACALCET HYDROCHLORIDE [Suspect]
     Dosage: 25 MG, QWK
     Route: 048
     Dates: start: 20111128
  5. METOPROLOL TARTRATE [Concomitant]
     Indication: HYPERTENSION
     Dosage: 10 MG, QD
     Route: 048
     Dates: start: 20110107, end: 20120204
  6. CINACALCET HYDROCHLORIDE [Suspect]
     Dosage: 25 MG, 3 TIMES/WK
     Route: 048
     Dates: start: 20111109
  7. CINACALCET HYDROCHLORIDE [Suspect]
     Indication: HYPERPARATHYROIDISM SECONDARY
     Dosage: 25 MG, QD
     Route: 048
     Dates: start: 20111201
  8. SEVELAMER HYDROCHLORIDE [Concomitant]
     Indication: HYPERPHOSPHATAEMIA
     Dosage: 250 MG, QID
     Route: 048
     Dates: start: 20110107
  9. CINACALCET HYDROCHLORIDE [Suspect]
     Dosage: 12.5 MG, QWK
     Route: 048
     Dates: start: 20111007
  10. L-CARTIN [Concomitant]
     Indication: CARNITINE DEFICIENCY
     Dosage: 300 MG, TID
     Route: 048
     Dates: start: 20110422
  11. ROCALTROL [Concomitant]
     Indication: HYPERPARATHYROIDISM SECONDARY
     Dosage: 0.5 MUG, QD
     Route: 040
     Dates: start: 20110107
  12. NESPO [Concomitant]
     Indication: NEPHROGENIC ANAEMIA
     Dosage: 20 MUG, QD
     Route: 040
     Dates: start: 20111107

REACTIONS (4)
  - VENTRICULAR TACHYCARDIA [None]
  - ABDOMINAL DISCOMFORT [None]
  - PALPITATIONS [None]
  - MALAISE [None]
